FAERS Safety Report 6940777-4 (Version None)
Quarter: 2010Q3

REPORT INFORMATION
  Report Type: 
  Country: None (occurrence: None)
  Receive Date: 20100825
  Receipt Date: 20100816
  Transmission Date: 20110219
  Serious: Yes (Hospitalization, Other)
  Sender: FDA-Public Use
  Company Number: US-JNJFOC-20050101088

PATIENT
  Sex: Female
  Weight: 58.97 kg

DRUGS (6)
  1. ULTRAM [Suspect]
     Indication: COMPLEX REGIONAL PAIN SYNDROME
     Dosage: 1 TABLET, STRENGTH UNKNOWN
     Route: 048
  2. ULTRAM [Suspect]
     Route: 048
  3. ULTRAM [Suspect]
     Indication: PAIN
     Route: 048
  4. ULTRAM [Suspect]
     Dosage: 1 TABLET, STRENGTH UNKNOWN
     Route: 048
  5. NEURONTIN [Concomitant]
     Indication: COMPLEX REGIONAL PAIN SYNDROME
  6. LORTAB [Concomitant]

REACTIONS (4)
  - CONTRAINDICATION TO MEDICAL TREATMENT [None]
  - INSOMNIA [None]
  - MYOCARDIAL INFARCTION [None]
  - TACHYCARDIA [None]
